FAERS Safety Report 6467019-0 (Version None)
Quarter: 2009Q4

REPORT INFORMATION
  Report Type: 
  Country: None (occurrence: None)
  Receive Date: 20091127
  Receipt Date: 20091116
  Transmission Date: 20100525
  Serious: Yes (Hospitalization)
  Sender: FDA-Public Use
  Company Number: 2009AC000429

PATIENT
  Age: 68 Year
  Sex: Male
  Weight: 83.0083 kg

DRUGS (29)
  1. DIGOXIN [Suspect]
     Dosage: 0.125 MG; QD; PO
     Route: 048
  2. ASPIRIN [Concomitant]
  3. METFORMIN HCL [Concomitant]
  4. PLAVIX [Concomitant]
  5. AVODART [Concomitant]
  6. NEXIUM [Concomitant]
  7. FUROSEMIDE [Concomitant]
  8. GLIPIZIDE [Concomitant]
  9. INSULIN [Concomitant]
  10. METOPROLOL [Concomitant]
  11. POTASSIUM CHLORIDE [Concomitant]
  12. ZOCOR [Concomitant]
  13. FLOMAX [Concomitant]
  14. THEOPHYLLINE [Concomitant]
  15. KEFLEX [Concomitant]
  16. ROCEPHIN [Concomitant]
  17. ANTIVERT [Concomitant]
  18. GLUCOPHAGE [Concomitant]
  19. PRILOSEC [Concomitant]
  20. TOPROL-XL [Concomitant]
  21. PROSCAR [Concomitant]
  22. HYTRIN [Concomitant]
  23. LISINOPRIL [Concomitant]
  24. NICOTINE [Concomitant]
  25. GLUCOPHAGE [Concomitant]
  26. GLUCOTROL XL [Concomitant]
  27. XYZAL [Concomitant]
  28. AUGMENTIN [Concomitant]
  29. BACTRIM [Concomitant]

REACTIONS (45)
  - ABDOMINAL PAIN [None]
  - ASTHENIA [None]
  - BACK PAIN [None]
  - BENIGN PROSTATIC HYPERPLASIA [None]
  - BLADDER NECK OBSTRUCTION [None]
  - BLOOD GLUCOSE INCREASED [None]
  - BLOOD PRESSURE FLUCTUATION [None]
  - BRONCHITIS [None]
  - CARDIAC MURMUR [None]
  - CARDIOMYOPATHY [None]
  - CHEST DISCOMFORT [None]
  - DECREASED APPETITE [None]
  - DEHYDRATION [None]
  - DIARRHOEA [None]
  - DIZZINESS [None]
  - DYSPNOEA EXERTIONAL [None]
  - DYSURIA [None]
  - EJECTION FRACTION DECREASED [None]
  - HEART RATE IRREGULAR [None]
  - HYPERTENSION [None]
  - HYPOTENSION [None]
  - INGUINAL HERNIA [None]
  - ISCHAEMIA [None]
  - ISCHAEMIC CARDIOMYOPATHY [None]
  - LIMB INJURY [None]
  - NASAL CONGESTION [None]
  - NAUSEA [None]
  - NOCTURIA [None]
  - OROPHARYNGEAL PAIN [None]
  - PAIN [None]
  - PALPITATIONS [None]
  - POLLAKIURIA [None]
  - POSTNASAL DRIP [None]
  - PRESYNCOPE [None]
  - PRODUCTIVE COUGH [None]
  - PROSTATITIS [None]
  - PULMONARY EMBOLISM [None]
  - PYREXIA [None]
  - RHONCHI [None]
  - SENSATION OF PRESSURE [None]
  - THROMBOSIS [None]
  - TRANSIENT ISCHAEMIC ATTACK [None]
  - URINARY HESITATION [None]
  - WEIGHT DECREASED [None]
  - WHEEZING [None]
